FAERS Safety Report 17957786 (Version 1)
Quarter: 2020Q2

REPORT INFORMATION
  Report Type: Spontaneous
  Country: CN (occurrence: CN)
  Receive Date: 20200629
  Receipt Date: 20200629
  Transmission Date: 20200714
  Serious: Yes (Life-Threatening, Hospitalization, Other)
  Sender: FDA-Public Use
  Company Number: CN-BAXTER-2020BAX012722

PATIENT
  Age: 6 Year
  Sex: Female

DRUGS (29)
  1. HOLOXAN [Suspect]
     Active Substance: IFOSFAMIDE
     Indication: DIFFUSE LARGE B-CELL LYMPHOMA
     Dosage: RAA REGIMEN
     Route: 065
     Dates: start: 2019, end: 2019
  2. METHOTREXATE. [Suspect]
     Active Substance: METHOTREXATE
     Dosage: RBB REGIMEN
     Route: 065
     Dates: start: 2019, end: 2019
  3. ENDOXAN [Suspect]
     Active Substance: CYCLOPHOSPHAMIDE
     Dosage: RBB REGIMEN
     Route: 065
     Dates: start: 2019, end: 2019
  4. RITUXIMAB. [Suspect]
     Active Substance: RITUXIMAB
     Dosage: RCC REGIMEN
     Route: 065
     Dates: start: 2019, end: 2019
  5. DOXORUBICIN [Suspect]
     Active Substance: DOXORUBICIN
     Indication: DIFFUSE LARGE B-CELL LYMPHOMA
     Dosage: RBB REGIMEN
     Route: 065
     Dates: start: 2019, end: 2019
  6. ETOPOSIDE. [Suspect]
     Active Substance: ETOPOSIDE
     Dosage: AA REGIMEN
     Route: 065
     Dates: start: 2019, end: 2019
  7. METHOTREXATE. [Suspect]
     Active Substance: METHOTREXATE
     Dosage: AA REGIMEN
     Route: 065
     Dates: start: 2019, end: 2019
  8. VINDESINE [Suspect]
     Active Substance: VINDESINE
     Indication: DIFFUSE LARGE B-CELL LYMPHOMA
     Dosage: RCC REGIMEN
     Route: 065
     Dates: start: 2019, end: 2019
  9. CARPROFEN [Concomitant]
     Active Substance: CARPROFEN
     Indication: ANTIBIOTIC THERAPY
     Dosage: FOR 3 DAYS
     Route: 042
     Dates: start: 2019, end: 2019
  10. HOLOXAN [Suspect]
     Active Substance: IFOSFAMIDE
     Dosage: AA REGIMEN
     Route: 065
     Dates: start: 2019, end: 2019
  11. VINCRISTINE [Suspect]
     Active Substance: VINCRISTINE
     Dosage: RBB REGIMEN
     Route: 065
     Dates: start: 2019, end: 2019
  12. RITUXIMAB. [Suspect]
     Active Substance: RITUXIMAB
     Indication: DIFFUSE LARGE B-CELL LYMPHOMA
     Dosage: RBB REGIMEN
     Route: 065
     Dates: start: 2019, end: 2019
  13. RITUXIMAB. [Suspect]
     Active Substance: RITUXIMAB
     Dosage: RAA REGIMEN
     Route: 065
     Dates: start: 2019, end: 2019
  14. CYTARABINE. [Suspect]
     Active Substance: CYTARABINE
     Dosage: RCC REGIMEN
     Route: 065
     Dates: start: 2019, end: 2019
  15. PREDNISONE. [Suspect]
     Active Substance: PREDNISONE
     Indication: DIFFUSE LARGE B-CELL LYMPHOMA
     Dosage: V REGIMEN
     Route: 065
     Dates: start: 2019, end: 2019
  16. VINCRISTINE [Suspect]
     Active Substance: VINCRISTINE
     Indication: DIFFUSE LARGE B-CELL LYMPHOMA
     Dosage: AA REGIMEN
     Route: 065
     Dates: start: 2019, end: 2019
  17. METHOTREXATE. [Suspect]
     Active Substance: METHOTREXATE
     Indication: DIFFUSE LARGE B-CELL LYMPHOMA
     Dosage: RAA REGIMEN
     Route: 065
     Dates: start: 2019, end: 2019
  18. VANCOMYCIN [Concomitant]
     Active Substance: VANCOMYCIN
     Indication: ANTIBIOTIC THERAPY
     Dosage: FOR 3 DAYS
     Route: 042
     Dates: start: 2019, end: 2019
  19. ETOPOSIDE. [Suspect]
     Active Substance: ETOPOSIDE
     Dosage: RAA REGIMEN
     Route: 065
     Dates: start: 2019, end: 2019
  20. ETOPOSIDE. [Suspect]
     Active Substance: ETOPOSIDE
     Indication: DIFFUSE LARGE B-CELL LYMPHOMA
     Dosage: RCC REGIMEN
     Route: 065
     Dates: start: 2019, end: 2019
  21. DEXAMETHASONE. [Suspect]
     Active Substance: DEXAMETHASONE
     Dosage: RBB REGIMEN
     Route: 065
     Dates: start: 2019, end: 2019
  22. DEXAMETHASONE. [Suspect]
     Active Substance: DEXAMETHASONE
     Dosage: RCC REGIMEN
     Route: 065
     Dates: start: 2019, end: 2019
  23. DEXAMETHASONE. [Suspect]
     Active Substance: DEXAMETHASONE
     Dosage: RAA REGIMEN
     Route: 065
     Dates: start: 2019, end: 2019
  24. CYTARABINE. [Suspect]
     Active Substance: CYTARABINE
     Indication: DIFFUSE LARGE B-CELL LYMPHOMA
     Dosage: RAA REGIMEN
     Route: 065
     Dates: start: 2019, end: 2019
  25. CYTARABINE. [Suspect]
     Active Substance: CYTARABINE
     Dosage: AA REGIMEN
     Route: 065
     Dates: start: 2019, end: 2019
  26. IMIPENEM [Concomitant]
     Active Substance: IMIPENEM
     Indication: ANTIBIOTIC THERAPY
     Dosage: FOR 3 DAYS
     Route: 042
     Dates: start: 2019, end: 2019
  27. ENDOXAN [Suspect]
     Active Substance: CYCLOPHOSPHAMIDE
     Indication: DIFFUSE LARGE B-CELL LYMPHOMA
     Dosage: V REGIMEN
     Route: 065
     Dates: start: 2019, end: 2019
  28. DEXAMETHASONE. [Suspect]
     Active Substance: DEXAMETHASONE
     Indication: DIFFUSE LARGE B-CELL LYMPHOMA
     Dosage: AA REGIMEN
     Route: 065
     Dates: start: 2019, end: 2019
  29. VINCRISTINE [Suspect]
     Active Substance: VINCRISTINE
     Dosage: RAA REGIMEN
     Route: 065
     Dates: start: 2019, end: 2019

REACTIONS (8)
  - Pleural effusion [Recovered/Resolved]
  - Haemoglobin decreased [Unknown]
  - Bone marrow failure [Unknown]
  - Clostridium difficile infection [Recovered/Resolved]
  - Hydrothorax [Recovered/Resolved]
  - Atelectasis [Unknown]
  - Ascites [Recovered/Resolved]
  - Pneumonia [Unknown]

NARRATIVE: CASE EVENT DATE: 2019
